FAERS Safety Report 25358561 (Version 1)
Quarter: 2025Q2

REPORT INFORMATION
  Report Type: Spontaneous
  Country: US (occurrence: US)
  Receive Date: 20250526
  Receipt Date: 20250526
  Transmission Date: 20250716
  Serious: No
  Sender: ROCHE
  Company Number: US-ROCHE-10000292790

PATIENT

DRUGS (4)
  1. OCREVUS ZUNOVO [Suspect]
     Active Substance: HYALURONIDASE-OCSQ\OCRELIZUMAB
     Indication: Product used for unknown indication
     Route: 065
  2. BENADRYL [Concomitant]
     Active Substance: DIPHENHYDRAMINE HYDROCHLORIDE
  3. DECADRON [Concomitant]
     Active Substance: DEXAMETHASONE
  4. ACETAMINOPHEN [Concomitant]
     Active Substance: ACETAMINOPHEN

REACTIONS (2)
  - Pruritus [Unknown]
  - Erythema [Unknown]
